FAERS Safety Report 4889706-8 (Version None)
Quarter: 2006Q1

REPORT INFORMATION
  Report Type: 
  Country: None (occurrence: None)
  Receive Date: 20060124
  Receipt Date: 20051020
  Transmission Date: 20060701
  Serious: Yes (Hospitalization, Other)
  Sender: FDA-Public Use
  Company Number: PHRM2005FR02812

PATIENT
  Age: 76 Year
  Sex: Male
  Weight: 98 kg

DRUGS (5)
  1. GLEEVEC [Suspect]
     Indication: CHRONIC MYELOID LEUKAEMIA
     Dosage: 400 MG PER DAY
     Route: 048
     Dates: start: 20050203, end: 20050907
  2. ALPRESS [Concomitant]
     Indication: HYPERTENSION
     Dosage: 5 MG, DAILY
     Route: 048
  3. CHRONADALATE [Concomitant]
     Indication: HYPERTENSION
     Dosage: 30 MG, DAILY
     Route: 048
  4. COAPROVEL [Concomitant]
     Indication: HYPERTENSION
     Dosage: 1 DF, QD
     Route: 048
  5. EUPANTOL [Concomitant]
     Dosage: 40 MG, DAILY
     Route: 048

REACTIONS (8)
  - BILE DUCT OBSTRUCTION [None]
  - BILIARY DILATATION [None]
  - BILIARY TRACT OPERATION [None]
  - BLOOD BILIRUBIN INCREASED [None]
  - JAUNDICE [None]
  - MALIGNANT NEOPLASM PROGRESSION [None]
  - PANCREATIC DUCT DILATATION [None]
  - SURGERY [None]
